FAERS Safety Report 5439307-8 (Version None)
Quarter: 2007Q3

REPORT INFORMATION
  Report Type: 
  Country: None (occurrence: None)
  Receive Date: 20070831
  Receipt Date: 20070824
  Transmission Date: 20080115
  Serious: No
  Sender: FDA-Public Use
  Company Number: A0674797A

PATIENT
  Age: 35 Year
  Weight: 76 kg

DRUGS (1)
  1. ALLI [Suspect]
     Indication: DRUG USE FOR UNKNOWN INDICATION
     Dates: start: 20070706

REACTIONS (4)
  - DYSPEPSIA [None]
  - ERUCTATION [None]
  - GASTROINTESTINAL DISORDER [None]
  - NONSPECIFIC REACTION [None]
